FAERS Safety Report 6569550-6 (Version None)
Quarter: 2010Q1

REPORT INFORMATION
  Report Type: 
  Country: None (occurrence: None)
  Receive Date: 20100204
  Receipt Date: 20100119
  Transmission Date: 20100710
  Serious: Yes (Hospitalization, Other)
  Sender: FDA-Public Use
  Company Number: US-ASTRAZENECA-2009SE31816

PATIENT
  Age: 62 Year
  Sex: Male
  Weight: 78.5 kg

DRUGS (8)
  1. SYMBICORT [Suspect]
     Indication: CHRONIC OBSTRUCTIVE PULMONARY DISEASE
     Dosage: 160/4.5 MCG 2 PUFF
     Route: 055
     Dates: start: 20090901, end: 20090901
  2. SYMBICORT [Suspect]
     Dosage: 160/4.5 MCG 2 PUFF
     Route: 055
     Dates: start: 20091108
  3. PLAVIX [Concomitant]
  4. ISOSORBIDE [Concomitant]
  5. LISINOPRIL [Concomitant]
  6. SIMVASTATIN [Concomitant]
  7. ALBUTEROL/IPATROPIUM NEB. [Concomitant]
  8. SPIRIVA [Concomitant]

REACTIONS (4)
  - CARDIAC FAILURE CONGESTIVE [None]
  - CHRONIC OBSTRUCTIVE PULMONARY DISEASE [None]
  - DYSPNOEA [None]
  - PNEUMONIA [None]
